FAERS Safety Report 9925926 (Version 4)
Quarter: 2015Q4

REPORT INFORMATION
  Report Type: Spontaneous
  Country: BR (occurrence: BR)
  Receive Date: 20140226
  Receipt Date: 20151123
  Transmission Date: 20160305
  Serious: Yes (Other)
  Sender: FDA-Public Use
  Company Number: BR-PFIZER INC-2014053529

PATIENT
  Sex: Female

DRUGS (2)
  1. FRONTAL [Suspect]
     Active Substance: ALPRAZOLAM
     Dosage: UNK
  2. FRONTAL SL [Suspect]
     Active Substance: ACETAMINOPHEN\PHENYLPROPANOLAMINE HYDROCHLORIDE\PHENYLTOLOXAMINE
     Indication: MUSCLE TIGHTNESS
     Dosage: UNK
     Route: 060

REACTIONS (3)
  - Drug effect delayed [Unknown]
  - Infarction [Unknown]
  - Drug dependence [Unknown]

NARRATIVE: CASE EVENT DATE: 201310
